FAERS Safety Report 8869797 (Version 1)
Quarter: 2012Q4

REPORT INFORMATION
  Report Type: Spontaneous
  Country: US (occurrence: None)
  Receive Date: 20121025
  Receipt Date: 20121025
  Transmission Date: 20130627
  Serious: Yes (Disabling, Other)
  Sender: FDA-Public Use
  Company Number: None

PATIENT
  Sex: Male
  Weight: 99.79 kg

DRUGS (1)
  1. VERSED [Suspect]
     Indication: COLONOSCOPY
     Dosage: varied varied
     Dates: start: 20090422, end: 20090422

REACTIONS (9)
  - Personality change [None]
  - Somnolence [None]
  - Fear [None]
  - Anxiety [None]
  - Aggression [None]
  - Paranoia [None]
  - Mania [None]
  - Hallucination [None]
  - Incorrect drug administration rate [None]
